FAERS Safety Report 10439653 (Version 1)
Quarter: 2014Q3

REPORT INFORMATION
  Report Type: Spontaneous
  Country: US (occurrence: US)
  Receive Date: 20140908
  Receipt Date: 20140908
  Transmission Date: 20150326
  Serious: Yes (Other)
  Sender: FDA-Public Use
  Company Number: US-PFIZER INC-2014245223

PATIENT
  Age: 48 Year
  Sex: Male
  Weight: 113.38 kg

DRUGS (1)
  1. LYRICA [Suspect]
     Active Substance: PREGABALIN
     Dosage: 75 MG, 2X/DAY
     Route: 048
     Dates: start: 201308, end: 2014

REACTIONS (4)
  - Pain [Unknown]
  - Monoplegia [Unknown]
  - Sciatic nerve neuropathy [Unknown]
  - Back disorder [Unknown]
